FAERS Safety Report 23187429 (Version 1)
Quarter: 2023Q4

REPORT INFORMATION
  Report Type: Spontaneous
  Country: US (occurrence: US)
  Receive Date: 20231115
  Receipt Date: 20231115
  Transmission Date: 20240109
  Serious: No
  Sender: FDA-Public Use
  Company Number: US-SA-SAC20231107001070

PATIENT
  Sex: Female
  Weight: 82 kg

DRUGS (11)
  1. DUPIXENT [Suspect]
     Active Substance: DUPILUMAB
     Indication: Dermatitis atopic
     Dosage: 300 MG, QOW
     Route: 058
  2. POTASSIUM CHLORIDE [Concomitant]
     Active Substance: POTASSIUM CHLORIDE
  3. GABAPENTIN [Concomitant]
     Active Substance: GABAPENTIN
  4. HYDROCHLOROTHIAZIDE [Concomitant]
     Active Substance: HYDROCHLOROTHIAZIDE
  5. DAPSONE [Concomitant]
     Active Substance: DAPSONE
  6. NAPROXEN [Concomitant]
     Active Substance: NAPROXEN
  7. TRIAMCINOLONE ACETONIDE [Concomitant]
     Active Substance: TRIAMCINOLONE ACETONIDE
  8. RECLAST [Concomitant]
     Active Substance: ZOLEDRONIC ACID
  9. MELATONIN [Concomitant]
     Active Substance: MELATONIN
  10. HYDROXYZINE HYDROCHLORIDE [Concomitant]
     Active Substance: HYDROXYZINE HYDROCHLORIDE
  11. LEVOCETIRIZINE DIHYDROCHLORIDE [Concomitant]
     Active Substance: LEVOCETIRIZINE DIHYDROCHLORIDE

REACTIONS (1)
  - Dermatitis atopic [Unknown]
